FAERS Safety Report 15532567 (Version 1)
Quarter: 2018Q4

REPORT INFORMATION
  Report Type: Spontaneous
  Country: JP (occurrence: JP)
  Receive Date: 20181019
  Receipt Date: 20181019
  Transmission Date: 20190205
  Serious: Yes (Hospitalization)
  Sender: FDA-Public Use
  Company Number: JP-GLAXOSMITHKLINE-JP2017204409

PATIENT
  Age: 74 Year
  Sex: Female

DRUGS (1)
  1. DICLOFENAC SODIUM. [Suspect]
     Active Substance: DICLOFENAC SODIUM
     Indication: CANCER PAIN
     Dosage: 37.5 MG, UNK
     Route: 048

REACTIONS (1)
  - Influenza [Recovering/Resolving]

NARRATIVE: CASE EVENT DATE: 20171128
